FAERS Safety Report 19389189 (Version 2)
Quarter: 2025Q3

REPORT INFORMATION
  Report Type: Spontaneous
  Country: EU (occurrence: EU)
  Receive Date: 20210608
  Receipt Date: 20250916
  Transmission Date: 20251021
  Serious: Yes (Other)
  Sender: MYLAN
  Company Number: None

PATIENT
  Age: 19 Year
  Sex: Male

DRUGS (32)
  1. TRAMADOL [Suspect]
     Active Substance: TRAMADOL
     Indication: Product used for unknown indication
  2. TRAMADOL [Suspect]
     Active Substance: TRAMADOL
     Route: 065
  3. TRAMADOL [Suspect]
     Active Substance: TRAMADOL
     Route: 065
  4. TRAMADOL [Suspect]
     Active Substance: TRAMADOL
  5. XANAX [Suspect]
     Active Substance: ALPRAZOLAM
     Indication: Product used for unknown indication
  6. XANAX [Suspect]
     Active Substance: ALPRAZOLAM
     Route: 065
  7. XANAX [Suspect]
     Active Substance: ALPRAZOLAM
     Route: 065
  8. XANAX [Suspect]
     Active Substance: ALPRAZOLAM
  9. CYAMEMAZINE [Suspect]
     Active Substance: CYAMEMAZINE
     Indication: Product used for unknown indication
  10. CYAMEMAZINE [Suspect]
     Active Substance: CYAMEMAZINE
     Route: 065
  11. CYAMEMAZINE [Suspect]
     Active Substance: CYAMEMAZINE
     Route: 065
  12. CYAMEMAZINE [Suspect]
     Active Substance: CYAMEMAZINE
  13. COCAINE [Suspect]
     Active Substance: COCAINE
     Indication: Product used for unknown indication
  14. COCAINE [Suspect]
     Active Substance: COCAINE
     Route: 065
  15. COCAINE [Suspect]
     Active Substance: COCAINE
     Route: 065
  16. COCAINE [Suspect]
     Active Substance: COCAINE
  17. KETAMINE [Suspect]
     Active Substance: KETAMINE
     Indication: Product used for unknown indication
  18. KETAMINE [Suspect]
     Active Substance: KETAMINE
  19. KETAMINE [Suspect]
     Active Substance: KETAMINE
     Route: 065
  20. KETAMINE [Suspect]
     Active Substance: KETAMINE
     Route: 065
  21. KETAMINE [Suspect]
     Active Substance: KETAMINE
  22. KETAMINE [Suspect]
     Active Substance: KETAMINE
  23. KETAMINE [Suspect]
     Active Substance: KETAMINE
     Route: 065
  24. KETAMINE [Suspect]
     Active Substance: KETAMINE
     Route: 065
  25. CODEINE [Suspect]
     Active Substance: CODEINE
     Indication: Product used for unknown indication
  26. CODEINE [Suspect]
     Active Substance: CODEINE
     Route: 065
  27. CODEINE [Suspect]
     Active Substance: CODEINE
     Route: 065
  28. CODEINE [Suspect]
     Active Substance: CODEINE
  29. MIDOMAFETAMINE [Suspect]
     Active Substance: MIDOMAFETAMINE
     Indication: Product used for unknown indication
  30. MIDOMAFETAMINE [Suspect]
     Active Substance: MIDOMAFETAMINE
     Route: 065
  31. MIDOMAFETAMINE [Suspect]
     Active Substance: MIDOMAFETAMINE
     Route: 065
  32. MIDOMAFETAMINE [Suspect]
     Active Substance: MIDOMAFETAMINE

REACTIONS (2)
  - Drug dependence [Recovering/Resolving]
  - Intentional product misuse [Unknown]

NARRATIVE: CASE EVENT DATE: 20160101
